FAERS Safety Report 10159088 (Version 1)
Quarter: 2014Q2

REPORT INFORMATION
  Report Type: Spontaneous
  Country: GB (occurrence: GB)
  Receive Date: 20140508
  Receipt Date: 20140508
  Transmission Date: 20141212
  Serious: Yes (Other)
  Sender: FDA-Public Use
  Company Number: GB-MERCK-1405GBR003508

PATIENT
  Age: 69 Year
  Sex: Female

DRUGS (2)
  1. SIMVASTATIN [Suspect]
     Dosage: 20 MG, UNK
     Route: 048
     Dates: start: 20120601
  2. SIMVASTATIN [Suspect]
     Dosage: 10 MG, UNK
     Route: 048
     Dates: end: 201211

REACTIONS (3)
  - Breast atrophy [Not Recovered/Not Resolved]
  - Alopecia [Not Recovered/Not Resolved]
  - Weight decreased [Not Recovered/Not Resolved]
